FAERS Safety Report 7861155-X (Version None)
Quarter: 2011Q4

REPORT INFORMATION
  Report Type: 
  Country: None (occurrence: None)
  Receive Date: 20111027
  Receipt Date: 20111024
  Transmission Date: 20120403
  Serious: Yes (Other)
  Sender: FDA-Public Use
  Company Number: CHPA2011US14764

PATIENT
  Age: 62 Year
  Sex: Female

DRUGS (1)
  1. MAALOX ADVANCED REGULAR STRENGTH [Suspect]
     Indication: DYSPEPSIA
     Dosage: 4 TSP, QD
     Route: 048

REACTIONS (2)
  - DIARRHOEA [None]
  - HYPERTENSION [None]
